FAERS Safety Report 14142001 (Version 2)
Quarter: 2018Q1

REPORT INFORMATION
  Report Type: Spontaneous
  Country: AU (occurrence: AU)
  Receive Date: 20171030
  Receipt Date: 20180206
  Transmission Date: 20180508
  Serious: Yes (Other)
  Sender: FDA-Public Use
  Company Number: AU-TEVA-812172ISR

PATIENT
  Age: 19 Year
  Sex: Male
  Weight: 79 kg

DRUGS (6)
  1. ROCON [Suspect]
     Active Substance: ROCURONIUM BROMIDE
     Indication: NEUROMUSCULAR BLOCKING THERAPY
     Dosage: STAT (IMMEDIATELY)
     Route: 042
     Dates: start: 20170925, end: 20170925
  2. CEFAZOLIN (BRAND UNSPECIFIED) [Concomitant]
     Active Substance: CEFAZOLIN
  3. ROCON [Suspect]
     Active Substance: ROCURONIUM BROMIDE
     Dosage: EXTRA
     Route: 042
     Dates: start: 20170925, end: 20170925
  4. METRONIDAZOLE (BRAND UNSPECIFIED) [Concomitant]
  5. FENTANYL (BRAND UNSPECIFIED) [Concomitant]
  6. MIDAZOLAM (BRAND UNSPECIFIED) [Concomitant]

REACTIONS (1)
  - Therapy partial responder [Recovered/Resolved]

NARRATIVE: CASE EVENT DATE: 20170925
